FAERS Safety Report 7770083-X (Version None)
Quarter: 2011Q3

REPORT INFORMATION
  Report Type: 
  Country: None (occurrence: None)
  Receive Date: 20110922
  Receipt Date: 20110406
  Transmission Date: 20111222
  Serious: Yes (Other)
  Sender: FDA-Public Use
  Company Number: US-ASTRAZENECA-2011SE19592

PATIENT
  Sex: Female

DRUGS (6)
  1. ATIVAN [Concomitant]
  2. SEROQUEL XR [Suspect]
     Route: 048
  3. LITHIUM CARBONATE [Concomitant]
  4. SEROQUEL XR [Suspect]
     Route: 048
  5. ANTIDEPRESSANTS [Concomitant]
  6. ADDERALL 5 [Concomitant]

REACTIONS (1)
  - TARDIVE DYSKINESIA [None]
